FAERS Safety Report 9681768 (Version 2)
Quarter: 2013Q4

REPORT INFORMATION
  Report Type: Spontaneous
  Country: GB (occurrence: GB)
  Receive Date: 20131111
  Receipt Date: 20131111
  Transmission Date: 20140711
  Serious: Yes (Hospitalization, Disabling)
  Sender: FDA-Public Use
  Company Number: GB-TEVA-410792ISR

PATIENT
  Sex: Female
  Weight: 50.8 kg

DRUGS (14)
  1. CIPROFLOXACIN [Suspect]
     Indication: LOWER RESPIRATORY TRACT INFECTION
     Dosage: 1000 MILLIGRAM DAILY;
     Route: 048
     Dates: start: 20130425, end: 20130503
  2. ZOPICLONE [Concomitant]
     Dosage: 3.75 MILLIGRAM DAILY;
  3. LEVOTHYROXINE [Concomitant]
     Dosage: 25 MICROGRAM DAILY;
  4. ASPIRIN COATED [Concomitant]
     Dosage: 75 MILLIGRAM DAILY;
  5. BISOPROLOL [Concomitant]
     Dosage: 1.25 MILLIGRAM DAILY;
  6. FLECAINIDE [Concomitant]
     Dosage: 50 MILLIGRAM DAILY;
  7. SERETIDE [Concomitant]
  8. CO-AMILOFRUSE [Concomitant]
     Dosage: 1 DOSAGE FORMS DAILY; ONE IN THE MORNING
  9. CETRABEN EMOLLIENT CREAM [Concomitant]
     Dosage: REPEAT PRESCRIPTION
     Route: 061
  10. IBANDRONIC ACID [Concomitant]
     Dosage: REPEAT PRESCRIPTION
  11. LOPERAMIDE HYDROCHLORIDE [Concomitant]
     Dosage: 4 MILLIGRAM DAILY; REPEAT PRESCRIPTION
  12. VENTOLIN [Concomitant]
     Dosage: 2 PUFFS 4 TIMES A DAY IF NECESSARY, INHALATION
  13. CLENIL MODULITE [Concomitant]
     Dosage: 200 MICROGRAM DAILY; INHALATION
  14. INHALER [Concomitant]
     Dosage: AEROCHAMBER PLUS SPACER DEVICE STANDARD (BLUE) USE WITH INHALERS

REACTIONS (5)
  - Tendonitis [Recovering/Resolving]
  - Contusion [Unknown]
  - Mobility decreased [Unknown]
  - Overdose [Unknown]
  - Respiratory arrest [Unknown]
